FAERS Safety Report 12736080 (Version 1)
Quarter: 2016Q3

REPORT INFORMATION
  Report Type: Spontaneous
  Country: DK (occurrence: DK)
  Receive Date: 20160912
  Receipt Date: 20160912
  Transmission Date: 20161109
  Serious: Yes (Other)
  Sender: FDA-Public Use
  Company Number: DK-SA-2016SA162278

PATIENT
  Age: 35 Year
  Sex: Male

DRUGS (1)
  1. LEMTRADA [Suspect]
     Active Substance: ALEMTUZUMAB
     Dosage: SECOND TREATMENT 1 YEAR APART
     Route: 042

REACTIONS (2)
  - Gait disturbance [Unknown]
  - Hyperthyroidism [Unknown]
